FAERS Safety Report 10181016 (Version 1)
Quarter: 2014Q2

REPORT INFORMATION
  Report Type: Spontaneous
  Country: US (occurrence: US)
  Receive Date: 20140519
  Receipt Date: 20140519
  Transmission Date: 20141212
  Serious: No
  Sender: FDA-Public Use
  Company Number: US-AMGEN INC.-USASP2014013520

PATIENT
  Age: 77 Year
  Sex: Female

DRUGS (6)
  1. PROLIA [Suspect]
     Indication: BONE LOSS
     Dosage: UNK UNK, Q6MO
     Route: 065
     Dates: start: 20131206
  2. CYMBALTA [Concomitant]
     Dosage: UNK
     Route: 065
  3. VITAMIN D3 [Concomitant]
     Dosage: 2000 IU, QD
     Route: 065
  4. ASPIRIN [Concomitant]
     Dosage: 325 MG, QD
     Route: 065
  5. CALCIUM + VITAMIN D3 [Concomitant]
     Dosage: 1200 MG, QD
     Route: 065
  6. ANASTROZOLE [Concomitant]
     Dosage: UNK
     Route: 065

REACTIONS (5)
  - Paraesthesia [Unknown]
  - Cystitis [Unknown]
  - Arthralgia [Unknown]
  - Back pain [Unknown]
  - Pain in extremity [Unknown]
